FAERS Safety Report 8045039-2 (Version None)
Quarter: 2012Q1

REPORT INFORMATION
  Report Type: 
  Country: None (occurrence: None)
  Receive Date: 20120110
  Receipt Date: 20111227
  Transmission Date: 20120608
  Serious: Yes (Death, Hospitalization)
  Sender: FDA-Public Use
  Company Number: IMP_05507_2012

PATIENT
  Age: 18 Year
  Sex: Male

DRUGS (2)
  1. LORATADINE [Suspect]
     Indication: PRODUCT USED FOR UNKNOWN INDICATION
     Dosage: (1200 MG 1X, NOT THE PRESCRIBED AMOUNT ORAL)
     Route: 048
  2. ASPIRIN [Suspect]
     Indication: PRODUCT USED FOR UNKNOWN INDICATION
     Dosage: (NOT THE PRESCRIBED AMOUNT ORAL)
     Route: 048

REACTIONS (15)
  - LABORATORY TEST ABNORMAL [None]
  - CONVULSION [None]
  - HYPERVENTILATION [None]
  - PCO2 DECREASED [None]
  - HEART RATE INCREASED [None]
  - VENTRICULAR TACHYCARDIA [None]
  - PULMONARY OEDEMA [None]
  - COMPLETED SUICIDE [None]
  - PO2 INCREASED [None]
  - BLOOD BICARBONATE DECREASED [None]
  - TOXICITY TO VARIOUS AGENTS [None]
  - BLOOD PH INCREASED [None]
  - WHITE BLOOD CELL COUNT INCREASED [None]
  - HYPERTHERMIA [None]
  - HAEMODIALYSIS [None]
